FAERS Safety Report 14732453 (Version 1)
Quarter: 2018Q2

REPORT INFORMATION
  Report Type: Spontaneous
  Country: US (occurrence: US)
  Receive Date: 20180409
  Receipt Date: 20180409
  Transmission Date: 20180711
  Serious: No
  Sender: FDA-Public Use
  Company Number: US-BRISTOL-MYERS SQUIBB COMPANY-BMS-2018-031765

PATIENT
  Sex: Male
  Weight: 90.7 kg

DRUGS (2)
  1. AVODART [Concomitant]
     Active Substance: DUTASTERIDE
     Indication: PRODUCT USED FOR UNKNOWN INDICATION
     Route: 065
  2. ELIQUIS [Suspect]
     Active Substance: APIXABAN
     Indication: CEREBROVASCULAR ACCIDENT PROPHYLAXIS
     Dosage: 5 MG, BID
     Route: 048
     Dates: start: 201710, end: 20180331

REACTIONS (6)
  - Diarrhoea [Unknown]
  - Vomiting [Unknown]
  - Movement disorder [Unknown]
  - Asthenia [Unknown]
  - Gait disturbance [Unknown]
  - Dehydration [Unknown]
